FAERS Safety Report 6765991-2 (Version None)
Quarter: 2010Q2

REPORT INFORMATION
  Report Type: 
  Country: None (occurrence: None)
  Receive Date: 20100611
  Receipt Date: 20100604
  Transmission Date: 20101027
  Serious: Yes (Hospitalization)
  Sender: FDA-Public Use
  Company Number: A0786273A

PATIENT
  Age: 67 Year
  Sex: Male
  Weight: 133.6 kg

DRUGS (5)
  1. AVANDIA [Suspect]
     Indication: DIABETES MELLITUS
     Dosage: 4MG TWICE PER DAY
     Route: 048
     Dates: start: 20061101, end: 20070401
  2. GLIPIZIDE [Concomitant]
  3. NORVASC [Concomitant]
  4. LISINOPRIL [Concomitant]
  5. METFORMIN [Concomitant]

REACTIONS (3)
  - CARDIAC FAILURE CONGESTIVE [None]
  - CEREBROVASCULAR ACCIDENT [None]
  - HEART RATE IRREGULAR [None]
